FAERS Safety Report 6368099-3 (Version None)
Quarter: 2009Q3

REPORT INFORMATION
  Report Type: 
  Country: None (occurrence: None)
  Receive Date: 20090922
  Receipt Date: 20090910
  Transmission Date: 20100115
  Serious: Yes (Hospitalization, Other)
  Sender: FDA-Public Use
  Company Number: PHHY2009DE11344

PATIENT
  Sex: Female
  Weight: 56 kg

DRUGS (13)
  1. CGS 20267 T30748+ [Suspect]
     Indication: ADJUVANT THERAPY
     Dosage: 2.5 MG, QD
     Route: 048
     Dates: start: 20081202, end: 20090127
  2. HUMALOG [Concomitant]
     Dosage: UNK
     Dates: start: 19990101
  3. INSULIN [Concomitant]
     Dosage: UNK
     Dates: start: 19990101
  4. ACETYLSALICYLIC ACID [Concomitant]
     Dosage: 100
     Dates: start: 19910101
  5. ARELIX [Concomitant]
     Dosage: 5 MG
     Dates: start: 19910101
  6. ESIDRIX [Concomitant]
     Dosage: 25
     Dates: start: 19910101
  7. BISOHEXAL [Concomitant]
     Dosage: 5
     Dates: start: 19910101
  8. SIMVAHEXAL [Concomitant]
     Dosage: 20
     Dates: start: 20080601
  9. MACROGOL [Concomitant]
     Dosage: UNK
     Dates: start: 20081101
  10. PALLADONE [Concomitant]
     Dosage: UNK
     Dates: start: 20081101
  11. HYDROCHLOROTHIAZIDE [Concomitant]
     Dosage: UNK
     Dates: start: 19910101
  12. AMLODIPINE [Concomitant]
     Dosage: UNK
     Dates: start: 19910101
  13. BONDRONAT [Concomitant]
     Dosage: UNK
     Dates: start: 20081126

REACTIONS (10)
  - ANAEMIA [None]
  - BIOPSY BONE MARROW [None]
  - BONE MARROW TUMOUR CELL INFILTRATION [None]
  - BONE PAIN [None]
  - CENTRAL VENOUS CATHETERISATION [None]
  - GENERAL PHYSICAL HEALTH DETERIORATION [None]
  - LEUKOPENIA [None]
  - NEUTROPENIA [None]
  - PNEUMONIA [None]
  - PYREXIA [None]
